FAERS Safety Report 11849309 (Version 2)
Quarter: 2016Q4

REPORT INFORMATION
  Report Type: Spontaneous
  Country: US (occurrence: US)
  Receive Date: 20151218
  Receipt Date: 20161209
  Transmission Date: 20170206
  Serious: No
  Sender: FDA-Public Use
  Company Number: US-FERRINGPH-2015FE03722

PATIENT
  Age: 35 Year
  Sex: Female
  Weight: 50.79 kg

DRUGS (8)
  1. FOLLISTIM [Concomitant]
     Active Substance: FOLLITROPIN
  2. CETROTIDE [Concomitant]
     Active Substance: CETRORELIX ACETATE
  3. BIOSIL [Concomitant]
     Indication: SKIN DISORDER
  4. MENOPUR [Suspect]
     Active Substance: FOLLICLE STIMULATING HORMONE BETA POLYPEPTIDE\LUTROPIN ALFA
     Indication: INFERTILITY
     Dosage: 150 IU, DAILY
     Route: 058
     Dates: start: 20151001, end: 20151014
  5. BIOSIL [Concomitant]
     Indication: NAIL DISORDER
  6. PRIMROSE OIL [Concomitant]
     Dosage: UNK, DAILY
  7. BIOSIL [Concomitant]
     Indication: HAIR DISORDER
     Dosage: UNK, DAILY
     Route: 048
  8. PLAQUENIL [Concomitant]
     Active Substance: HYDROXYCHLOROQUINE SULFATE
     Indication: SYSTEMIC LUPUS ERYTHEMATOSUS
     Dosage: UNK
     Route: 048
     Dates: start: 201508

REACTIONS (2)
  - Injection site bruising [Not Recovered/Not Resolved]
  - Rash [Not Recovered/Not Resolved]

NARRATIVE: CASE EVENT DATE: 20151001
